FAERS Safety Report 4396791-9 (Version None)
Quarter: 2004Q3

REPORT INFORMATION
  Report Type: 
  Country: None (occurrence: None)
  Receive Date: 20040714
  Receipt Date: 20040512
  Transmission Date: 20050211
  Serious: Yes (Other)
  Sender: FDA-Public Use
  Company Number: PHBS2004JP06503

PATIENT
  Age: 54 Year
  Sex: Male

DRUGS (3)
  1. DIOVAN [Suspect]
     Dosage: 80 MG/DAY
     Route: 048
     Dates: start: 20020924
  2. LIPITOR [Concomitant]
     Dosage: 10 MG/DAY
     Route: 048
     Dates: start: 20030130, end: 20040506
  3. BEHYD [Concomitant]
     Route: 048
     Dates: start: 20030802, end: 20040506

REACTIONS (3)
  - BLOOD CREATININE INCREASED [None]
  - BLOOD UREA INCREASED [None]
  - NEPHROLITHIASIS [None]
